FAERS Safety Report 7469271-1 (Version None)
Quarter: 2011Q2

REPORT INFORMATION
  Report Type: 
  Country: None (occurrence: None)
  Receive Date: 20110510
  Receipt Date: 20110428
  Transmission Date: 20111010
  Serious: Yes (Other)
  Sender: FDA-Public Use
  Company Number: BR-AMGEN-BRASP2011010554

PATIENT
  Age: 49 Year
  Sex: Female
  Weight: 85 kg

DRUGS (13)
  1. ATENOLOL [Concomitant]
     Indication: BLOOD PRESSURE INCREASED
     Dosage: 100 MG, 1X/DAY
     Dates: start: 20100401
  2. SIMVASTATIN [Concomitant]
     Indication: BLOOD CHOLESTEROL INCREASED
     Dosage: 20 MG, 1X/DAY
     Dates: start: 20100101
  3. FLUOXETINE [Concomitant]
     Indication: DEPRESSION
     Dosage: 30 MG, 1X/DAY
     Dates: start: 20101101
  4. GEROVITAL                          /00083401/ [Concomitant]
     Indication: PRE-EXISTING CONDITION IMPROVED
     Dosage: UNK
     Dates: start: 20110201
  5. ENBREL [Suspect]
     Indication: PSORIASIS
     Dosage: 50 MG, ONCE A WEEK
     Route: 058
     Dates: start: 20101101
  6. GARCINIA CAMBOGIA COMP [Concomitant]
     Indication: WEIGHT DECREASED
     Dosage: 240 MG, UNK
     Dates: start: 20100101
  7. PURAN T4 [Concomitant]
     Indication: HYPOTHYROIDISM
     Dosage: UNK UNK, QD
     Dates: start: 20050101
  8. FUROSEMIDE [Concomitant]
     Dosage: UNK
     Dates: start: 20101101
  9. TEGRETOL [Concomitant]
     Indication: DEPRESSION
     Dosage: 200MG,  FOR 2 MONTHS
     Dates: start: 20110201
  10. RISPERIDONE [Concomitant]
     Indication: DEPRESSION
     Dosage: FOR 3 MONTHS
     Dates: start: 20110101
  11. FLAVONID [Concomitant]
     Indication: PERIPHERAL VASCULAR DISORDER
     Dosage: UNK
     Dates: start: 20110201
  12. ORGANONEURO CEREBRAL [Concomitant]
     Indication: PRE-EXISTING CONDITION IMPROVED
     Dosage: UNK
     Dates: start: 20110201
  13. ALPRAZOLAM [Concomitant]
     Indication: DEPRESSION
     Dosage: FOR 3 MONTHS
     Dates: start: 20110101

REACTIONS (5)
  - DIABETES MELLITUS [None]
  - OEDEMA PERIPHERAL [None]
  - WEIGHT INCREASED [None]
  - TACHYCARDIA [None]
  - FATIGUE [None]
